FAERS Safety Report 6726233-7 (Version None)
Quarter: 2010Q2

REPORT INFORMATION
  Report Type: 
  Country: None (occurrence: None)
  Receive Date: 20100514
  Receipt Date: 20100503
  Transmission Date: 20101027
  Serious: Yes (Other)
  Sender: FDA-Public Use
  Company Number: US-PFIZER INC-2010033945

PATIENT
  Sex: Male
  Weight: 77.098 kg

DRUGS (4)
  1. GEODON [Suspect]
     Indication: BIPOLAR DISORDER
     Dosage: 60 MG, 1X/DAY
     Route: 048
  2. DEPAKOTE [Suspect]
     Dosage: UNK
  3. CHANTIX [Concomitant]
     Dosage: UNK
  4. ZOCOR [Concomitant]
     Dosage: UNK

REACTIONS (4)
  - DYSKINESIA [None]
  - FEELING ABNORMAL [None]
  - TREMOR [None]
  - WEIGHT FLUCTUATION [None]
